FAERS Safety Report 7490404-5 (Version None)
Quarter: 2011Q2

REPORT INFORMATION
  Report Type: 
  Country: None (occurrence: None)
  Receive Date: 20110517
  Receipt Date: 20110517
  Transmission Date: 20111010
  Serious: Yes (Other)
  Sender: FDA-Public Use
  Company Number: None

PATIENT
  Age: 93 Year
  Sex: Male

DRUGS (1)
  1. SPRYCEL [Suspect]
     Indication: NEOPLASM MALIGNANT
     Dosage: 50 MG X2 QD PO
     Route: 048
     Dates: start: 20101223, end: 20110501

REACTIONS (5)
  - DEMENTIA [None]
  - WEIGHT DECREASED [None]
  - COMMUNICATION DISORDER [None]
  - CONDITION AGGRAVATED [None]
  - ABNORMAL BEHAVIOUR [None]
